FAERS Safety Report 21268703 (Version 1)
Quarter: 2022Q3

REPORT INFORMATION
  Report Type: Spontaneous
  Country: US (occurrence: US)
  Receive Date: 20220830
  Receipt Date: 20220830
  Transmission Date: 20221026
  Serious: No
  Sender: FDA-Public Use
  Company Number: US-ESPERIONTHERAPEUTICS-2022USA01495

PATIENT
  Age: 66 Year
  Sex: Male
  Weight: 117.91 kg

DRUGS (1)
  1. NEXLETOL [Suspect]
     Active Substance: BEMPEDOIC ACID
     Indication: Blood triglycerides abnormal
     Dosage: 180 MILLIGRAM, QD
     Route: 048
     Dates: start: 202206, end: 202206

REACTIONS (2)
  - Rash macular [Recovered/Resolved]
  - Off label use [Recovered/Resolved]

NARRATIVE: CASE EVENT DATE: 20220601
